FAERS Safety Report 15654539 (Version 1)
Quarter: 2018Q4

REPORT INFORMATION
  Report Type: Spontaneous
  Country: MX (occurrence: MX)
  Receive Date: 20181126
  Receipt Date: 20181126
  Transmission Date: 20190205
  Serious: Yes (Death, Hospitalization)
  Sender: FDA-Public Use
  Company Number: MX-TEVA-2018-MX-980081

PATIENT
  Age: 67 Year
  Sex: Male

DRUGS (1)
  1. VALGANCICLOVIR. [Suspect]
     Active Substance: VALGANCICLOVIR
     Indication: CYTOMEGALOVIRUS COLITIS
     Route: 048

REACTIONS (5)
  - Neutropenia [Unknown]
  - Pseudomonas infection [Unknown]
  - Septic shock [Fatal]
  - Pneumonia necrotising [Unknown]
  - Ecthyma [Unknown]
